FAERS Safety Report 6430227-9 (Version None)
Quarter: 2009Q4

REPORT INFORMATION
  Report Type: 
  Country: None (occurrence: None)
  Receive Date: 20091106
  Receipt Date: 20090925
  Transmission Date: 20100525
  Serious: Yes (Other)
  Sender: FDA-Public Use
  Company Number: US-AVENTIS-200917894US

PATIENT
  Sex: Female

DRUGS (3)
  1. APIDRA [Suspect]
     Indication: DIABETES MELLITUS
     Route: 051
  2. OPTICLIK (INSULIN INJECTION PEN) [Suspect]
     Indication: DIABETES MELLITUS
     Dates: start: 20070101
  3. LANTUS [Concomitant]
     Indication: DIABETES MELLITUS
     Route: 058

REACTIONS (2)
  - DEVICE MALFUNCTION [None]
  - DIZZINESS [None]
